FAERS Safety Report 20765959 (Version 2)
Quarter: 2023Q1

REPORT INFORMATION
  Report Type: Spontaneous
  Country: US (occurrence: US)
  Receive Date: 20220428
  Receipt Date: 20230209
  Transmission Date: 20230418
  Serious: Yes (Other)
  Sender: FDA-Public Use
  Company Number: US-PFIZER INC-202200470696

PATIENT
  Age: 35 Year
  Sex: Female

DRUGS (1)
  1. IBRANCE [Suspect]
     Active Substance: PALBOCICLIB
     Dosage: UNK

REACTIONS (5)
  - Second primary malignancy [Recovering/Resolving]
  - Brain neoplasm [Recovering/Resolving]
  - Neuralgia [Unknown]
  - Hot flush [Recovered/Resolved]
  - Product dose omission issue [Unknown]
